FAERS Safety Report 19073157 (Version 1)
Quarter: 2021Q1

REPORT INFORMATION
  Report Type: Spontaneous
  Country: US (occurrence: US)
  Receive Date: 20210330
  Receipt Date: 20210330
  Transmission Date: 20210420
  Serious: Yes (Hospitalization)
  Sender: FDA-Public Use
  Company Number: None

PATIENT
  Age: 18 Year
  Sex: Female

DRUGS (8)
  1. HUMIRA [Suspect]
     Active Substance: ADALIMUMAB
     Indication: ILL-DEFINED DISORDER
     Dosage: 1 UNK
     Route: 058
     Dates: start: 20200519
  2. AMPHET/DEXTR TAB [Concomitant]
     Dosage: 1 UNK
     Route: 058
     Dates: start: 20200519
  3. HUMIRA [Suspect]
     Active Substance: ADALIMUMAB
     Indication: ACNE
     Dosage: 1 UNK
     Route: 058
     Dates: start: 20200519
  4. DROSPIRENONE [Concomitant]
     Active Substance: DROSPIRENONE
     Dates: start: 20210305
  5. HUMIRA [Suspect]
     Active Substance: ADALIMUMAB
     Indication: JUVENILE IDIOPATHIC ARTHRITIS
     Dosage: 1 UNK
     Route: 058
     Dates: start: 20200519
  6. TRIAMCINOLON [Concomitant]
     Dates: start: 20210326
  7. BUPRON HCL TAB [Concomitant]
     Dates: start: 20210113
  8. ESCITALOPRAM [Concomitant]
     Active Substance: ESCITALOPRAM OXALATE
     Dates: start: 20210208

REACTIONS (2)
  - COVID-19 [None]
  - Dehydration [None]

NARRATIVE: CASE EVENT DATE: 20210329
